FAERS Safety Report 14838806 (Version 9)
Quarter: 2023Q1

REPORT INFORMATION
  Report Type: Spontaneous
  Country: CA (occurrence: CA)
  Receive Date: 20180502
  Receipt Date: 20230209
  Transmission Date: 20230418
  Serious: Yes (Hospitalization, Other)
  Sender: FDA-Public Use
  Company Number: CA-PFIZER INC-2018174254

PATIENT
  Age: 3 Year
  Sex: Male

DRUGS (12)
  1. SOMATROPIN [Suspect]
     Active Substance: SOMATROPIN
     Indication: Growth hormone deficiency
     Dosage: 0.3 MG, 1X/DAY
     Route: 058
     Dates: start: 20170705, end: 201804
  2. SOMATROPIN [Suspect]
     Active Substance: SOMATROPIN
     Dosage: 0.35MG FOR FOUR DAYS (MON-THURS), AND 0.4MG FOR 3 DAYS (FRI-SUN)
     Route: 058
     Dates: start: 201804, end: 2020
  3. SOMATROPIN [Suspect]
     Active Substance: SOMATROPIN
     Dosage: 0.45 MG, DAILY
     Route: 058
     Dates: start: 2020
  4. SOMATROPIN [Suspect]
     Active Substance: SOMATROPIN
     Dosage: 600 UG, 6X/WEEK (GOQUICK)
     Route: 058
     Dates: start: 2022
  5. ALVESCO [Concomitant]
     Active Substance: CICLESONIDE
     Dosage: 1 PUFF, DAILY (UNKNOWN DOSE)
     Route: 048
  6. CYPROHEPTADINE [Concomitant]
     Active Substance: CYPROHEPTADINE
     Dosage: 4 ML, 2X/DAY, ALTERNATING BY TAKING 14 DAYS IN A ROW, AND NOT TAKING FOR 4 DAYS
     Route: 048
     Dates: start: 201708
  7. CLOBAZAM [Concomitant]
     Active Substance: CLOBAZAM
     Dosage: 10 MG, DAILY IN THE EVENING
     Route: 048
  8. KEPPRA [Concomitant]
     Active Substance: LEVETIRACETAM
     Dosage: 375 MG, 2X/DAY
     Route: 048
  9. PREDNISOLONE [Concomitant]
     Active Substance: PREDNISOLONE
     Dosage: 0.6 ML, 2X/DAY (CONCENTRATION OF 5MG/ML)
     Route: 048
  10. SYNTHROID [Concomitant]
     Active Substance: LEVOTHYROXINE SODIUM
     Dosage: 0.044 MG, DAILY
     Route: 048
  11. TOPAMAX [Concomitant]
     Active Substance: TOPIRAMATE
     Dosage: 12.5 MG, 2X/DAY
     Route: 048
  12. VENTOLIN [Concomitant]
     Active Substance: ALBUTEROL SULFATE
     Dosage: 2 PUFFS PO Q 4 HOURS PRN
     Route: 048

REACTIONS (5)
  - Hydrocephalus [Unknown]
  - Glucocorticoid deficiency [Unknown]
  - Hypothalamo-pituitary disorder [Unknown]
  - Intentional underdose [Unknown]
  - Pyrexia [Recovering/Resolving]
